FAERS Safety Report 10760268 (Version 2)
Quarter: 2015Q2

REPORT INFORMATION
  Report Type: Spontaneous
  Country: US (occurrence: US)
  Receive Date: 20150204
  Receipt Date: 20150407
  Transmission Date: 20150821
  Serious: No
  Sender: FDA-Public Use
  Company Number: US-009507513-1502USA001326

PATIENT
  Age: 67 Year
  Sex: Male
  Weight: 97.96 kg

DRUGS (13)
  1. SINGULAIR [Concomitant]
     Active Substance: MONTELUKAST SODIUM
     Dosage: ONE TABLET NIGHTLY AT BEDTIME
     Route: 048
  2. XOPENEX [Concomitant]
     Active Substance: LEVALBUTEROL HYDROCHLORIDE
     Dosage: ONE OR TWO PUFFS EVERY FOUR HOURS AS NEEDED
     Route: 055
  3. ZOSTAVAX [Concomitant]
     Active Substance: VARICELLA-ZOSTER VIRUS STRAIN OKA/MERCK LIVE ANTIGEN
     Indication: PROPHYLAXIS
     Dosage: .65 ML
  4. ZITHROMAX [Concomitant]
     Active Substance: AZITHROMYCIN DIHYDRATE
     Dosage: 2 TABLETS ON THE FIRST DAY, THEN 1 TABLET DAILY
     Route: 048
  5. SYNTHROID [Concomitant]
     Active Substance: LEVOTHYROXINE SODIUM
     Dosage: ONE TABLET ONE TIME DAILY
     Route: 048
  6. LOMOTIL (ATROPINE SULFATE (+) DIPHENOXYLATE HYDROCHLORIDE) [Concomitant]
     Indication: DIARRHOEA
     Dosage: TWO CAPSULES THREE TIMES DAILY AS NEEDED
     Route: 048
  7. QVAR [Concomitant]
     Active Substance: BECLOMETHASONE DIPROPIONATE
     Dosage: ONE PUFF TWICE DAILY
     Route: 055
  8. TUSSI-ORGANIDIN [Concomitant]
     Indication: COUGH
     Dosage: 5-10 ML AT BEDTIME AS NEEDED
     Route: 048
  9. CLARITIN [Concomitant]
     Active Substance: LORATADINE
     Indication: HYPERSENSITIVITY
     Dosage: 1 TABLET ONCE DAILY AS NEEDED
     Route: 048
  10. ISENTRESS [Suspect]
     Active Substance: RALTEGRAVIR POTASSIUM
     Indication: FATIGUE
     Dosage: 400 MG, TWICE DAILY
     Route: 048
     Dates: start: 20130719
  11. FLUZONE (INFLUENZA VIRUS SPLIT VIRION 4V VACCINE INACTIVATED) [Concomitant]
     Indication: PROPHYLAXIS
  12. VIREAD [Concomitant]
     Active Substance: TENOFOVIR DISOPROXIL FUMARATE
     Dosage: 1 TABLET DAILY
     Route: 048
  13. FLONASE [Concomitant]
     Active Substance: FLUTICASONE PROPIONATE
     Dosage: TWO SPRAYS IN EACH NOSTRIL DAILY
     Route: 045

REACTIONS (1)
  - Bronchitis [Recovered/Resolved]

NARRATIVE: CASE EVENT DATE: 20150112
